FAERS Safety Report 4695467-8 (Version None)
Quarter: 2005Q2

REPORT INFORMATION
  Report Type: 
  Country: None (occurrence: None)
  Receive Date: 20050621
  Receipt Date: 20050201
  Transmission Date: 20051028
  Serious: Yes (Hospitalization, Other)
  Sender: FDA-Public Use
  Company Number: DE-NOVOPROD-241976

PATIENT
  Age: 55 Year
  Sex: Female
  Weight: 82 kg

DRUGS (3)
  1. ACTIVELLE [Suspect]
     Indication: OSTEOPENIA
     Dates: start: 20021218
  2. METOPROLOL SUCCINATE [Concomitant]
     Dosage: 1 UNK, QD
     Route: 048
     Dates: start: 20000201
  3. TRIAMTERENE AND HYDROCHLOROTHIAZIDE [Concomitant]
     Dosage: 1 UNK, QD
     Route: 048
     Dates: start: 20000201

REACTIONS (1)
  - BASEDOW'S DISEASE [None]
